FAERS Safety Report 7249038-X (Version None)
Quarter: 2011Q1

REPORT INFORMATION
  Report Type: 
  Country: None (occurrence: None)
  Receive Date: 20110128
  Receipt Date: 20100526
  Transmission Date: 20110831
  Serious: Yes (Hospitalization)
  Sender: FDA-Public Use
  Company Number: US-BAYER-201017077NA

PATIENT
  Sex: Female
  Weight: 83 kg

DRUGS (14)
  1. YAZ [Suspect]
     Indication: ORAL CONTRACEPTION
     Dosage: UNK
     Dates: start: 20060101, end: 20090101
  2. ONDANSETRON [Concomitant]
  3. VERSED [Concomitant]
  4. LORTAB [Concomitant]
  5. ASACOL [Concomitant]
     Route: 048
  6. MEDROL [Concomitant]
     Dosage: UNK UNK, PRN
     Route: 048
  7. FLAGYL [Concomitant]
     Route: 048
  8. MEPERIDINE HCL [Concomitant]
  9. ZOSYN [Concomitant]
  10. KETOROLAC [Concomitant]
  11. UNCODEABLE ^UNCLASSIFIABLE^ [Concomitant]
     Indication: MEDICAL DIET
     Dosage: UNK
     Dates: start: 20080701, end: 20080801
  12. FAMOTIDINE [Concomitant]
  13. GLYCOPYRROLATE [Concomitant]
  14. PROMETHAZINE [Concomitant]

REACTIONS (7)
  - CHOLECYSTITIS [None]
  - BILIARY COLIC [None]
  - VOMITING [None]
  - VAGINAL HAEMORRHAGE [None]
  - CHOLELITHIASIS [None]
  - ABDOMINAL PAIN [None]
  - NAUSEA [None]
